FAERS Safety Report 15670199 (Version 4)
Quarter: 2020Q4

REPORT INFORMATION
  Report Type: Report from Study
  Country: None (occurrence: IL)
  Receive Date: 20181129
  Receipt Date: 20201223
  Transmission Date: 20210113
  Serious: Yes (Hospitalization, Other)
  Sender: FDA-Public Use
  Company Number: IL-ABBVIE-18S-082-2566952-00

PATIENT
  Age: 81 Year
  Sex: Male

DRUGS (3)
  1. DUODOPA [Suspect]
     Active Substance: CARBIDOPA\LEVODOPA
     Indication: PARKINSON^S DISEASE
     Route: 050
     Dates: start: 20130131
  2. DUODOPA [Suspect]
     Active Substance: CARBIDOPA\LEVODOPA
     Dosage: CURRENT MD: 8.0 ML, CD: 2.3 ML/ HOUR, ED: 1.8 ML.?THERAPY DURATION (HRS) REMAINS AT 16.
     Route: 050
  3. DUODOPA [Suspect]
     Active Substance: CARBIDOPA\LEVODOPA
     Dosage: CMD 8ML, CCD 2.3ML/HOUR, CED 1.7ML
     Route: 050

REACTIONS (13)
  - Contusion [Unknown]
  - Musculoskeletal stiffness [Unknown]
  - Gait disturbance [Unknown]
  - Fall [Unknown]
  - Eye contusion [Unknown]
  - Syncope [Recovered/Resolved]
  - Dizziness [Unknown]
  - Eye haemorrhage [Unknown]
  - Femur fracture [Unknown]
  - Orthostatic intolerance [Unknown]
  - On and off phenomenon [Unknown]
  - Middle insomnia [Unknown]
  - Fall [Unknown]

NARRATIVE: CASE EVENT DATE: 20181122
